FAERS Safety Report 11398237 (Version 1)
Quarter: 2015Q3

REPORT INFORMATION
  Report Type: Spontaneous
  Country: HU (occurrence: HU)
  Receive Date: 20150820
  Receipt Date: 20150820
  Transmission Date: 20151125
  Serious: Yes (Death, Other)
  Sender: FDA-Public Use
  Company Number: HU-ROCHE-1622590

PATIENT
  Age: 68 Year
  Sex: Male

DRUGS (4)
  1. AVASTIN [Suspect]
     Active Substance: BEVACIZUMAB
     Indication: LUNG NEOPLASM MALIGNANT
     Route: 065
     Dates: start: 20130110, end: 20130328
  2. PACLITAXEL. [Suspect]
     Active Substance: PACLITAXEL
     Indication: LUNG NEOPLASM MALIGNANT
     Route: 065
     Dates: start: 20130110, end: 20130328
  3. ASPIRIN PROTECT [Concomitant]
     Active Substance: ASPIRIN
  4. CARBOPLATIN. [Suspect]
     Active Substance: CARBOPLATIN
     Indication: LUNG NEOPLASM MALIGNANT
     Route: 065
     Dates: start: 20130110, end: 20130328

REACTIONS (3)
  - Angina pectoris [Unknown]
  - Cardiac failure acute [Unknown]
  - Death [Fatal]

NARRATIVE: CASE EVENT DATE: 20130711
